FAERS Safety Report 4432178-8 (Version None)
Quarter: 2004Q3

REPORT INFORMATION
  Report Type: 
  Country: None (occurrence: None)
  Receive Date: 20040820
  Receipt Date: 20040809
  Transmission Date: 20050211
  Serious: Yes (Other)
  Sender: FDA-Public Use
  Company Number: 2004207582FR

PATIENT
  Age: 68 Year
  Sex: Male
  Weight: 66 kg

DRUGS (1)
  1. XALATAN [Suspect]
     Indication: OPEN ANGLE GLAUCOMA
     Dosage: 1 GTT, QD, OPHTHALMIC
     Route: 047
     Dates: start: 19980430, end: 20040315

REACTIONS (5)
  - ABDOMINAL PAIN [None]
  - ADRENAL DISORDER [None]
  - BLOOD CATECHOLAMINES INCREASED [None]
  - DISEASE RECURRENCE [None]
  - PHAEOCHROMOCYTOMA [None]
